FAERS Safety Report 19951706 (Version 4)
Quarter: 2022Q1

REPORT INFORMATION
  Report Type: Spontaneous
  Country: US (occurrence: US)
  Receive Date: 20211014
  Receipt Date: 20220214
  Transmission Date: 20220423
  Serious: Yes (Other)
  Sender: FDA-Public Use
  Company Number: US-NOVOPROD-855401

PATIENT
  Age: 74 Year
  Sex: Male

DRUGS (8)
  1. LEVEMIR [Suspect]
     Active Substance: INSULIN DETEMIR
     Dosage: 140 IU (70IU AM, 70 IU PM)
     Route: 065
     Dates: end: 20180314
  2. LEVEMIR [Suspect]
     Active Substance: INSULIN DETEMIR
     Indication: Type 2 diabetes mellitus
     Dosage: 100 IU
     Route: 065
     Dates: start: 2010
  3. NOVOLOG [Suspect]
     Active Substance: INSULIN ASPART
     Indication: Type 2 diabetes mellitus
     Dosage: 100 IU
     Route: 058
     Dates: start: 20180314
  4. NOVOLOG [Suspect]
     Active Substance: INSULIN ASPART
     Dosage: 98 IU, QD (22U AM, 22U AFTERNOON, 42U PM, 12U SNACKS)
     Route: 065
     Dates: end: 20210622
  5. HUMALOG [Suspect]
     Active Substance: INSULIN LISPRO
     Dosage: 36 IU
     Route: 065
     Dates: end: 2018
  6. HUMALOG [Suspect]
     Active Substance: INSULIN LISPRO
     Indication: Type 2 diabetes mellitus
     Dosage: 36 IU
     Route: 065
     Dates: start: 2010
  7. LANTUS [Suspect]
     Active Substance: INSULIN GLARGINE
     Indication: Type 2 diabetes mellitus
     Dosage: 140 UNITS
     Route: 065
     Dates: start: 2018, end: 2021
  8. INVOKANA [Suspect]
     Active Substance: CANAGLIFLOZIN
     Indication: Type 2 diabetes mellitus
     Dosage: UNK
     Route: 065

REACTIONS (8)
  - Nervous system disorder [Recovering/Resolving]
  - Retinopathy [Recovering/Resolving]
  - Hypoglycaemia [Recovering/Resolving]
  - Product prescribing issue [Recovering/Resolving]
  - Hunger [Recovering/Resolving]
  - Hypertension [Recovering/Resolving]
  - Palpitations [Recovering/Resolving]
  - Blood glucose decreased [Unknown]

NARRATIVE: CASE EVENT DATE: 20100101
